FAERS Safety Report 6968205-3 (Version None)
Quarter: 2010Q3

REPORT INFORMATION
  Report Type: 
  Country: None (occurrence: None)
  Receive Date: 20100907
  Receipt Date: 20100825
  Transmission Date: 20110219
  Serious: Yes (Other)
  Sender: FDA-Public Use
  Company Number: BR-ROCHE-685112

PATIENT
  Sex: Female
  Weight: 63 kg

DRUGS (3)
  1. ROACUTAN [Suspect]
     Indication: ACNE
     Dosage: OTHER INDICATION: POLYCYSTIC OVARY SYNDROME.
     Route: 048
     Dates: start: 20091125
  2. ROACUTAN [Suspect]
     Dosage: DOSAGE INCREASED.
     Route: 048
     Dates: end: 20100129
  3. YASMIN [Concomitant]
     Indication: POLYCYSTIC OVARIES
     Route: 048
     Dates: start: 20081201

REACTIONS (2)
  - ILL-DEFINED DISORDER [None]
  - NODULE [None]
